FAERS Safety Report 9504813 (Version 3)
Quarter: 2013Q3

REPORT INFORMATION
  Report Type: Report from Study
  Country: US (occurrence: US)
  Receive Date: 20130906
  Receipt Date: 20130927
  Transmission Date: 20140515
  Serious: Yes (Hospitalization)
  Sender: FDA-Public Use
  Company Number: US-ACTELION-A-US2013-85903

PATIENT
  Age: 78 Year
  Sex: Female

DRUGS (10)
  1. TRACLEER [Suspect]
     Indication: PULMONARY ARTERIAL HYPERTENSION
     Dosage: 125 MG, BID
     Route: 048
     Dates: start: 2008
  2. TRACLEER [Suspect]
     Dosage: UNK
     Route: 048
     Dates: start: 2008, end: 2008
  3. CYMBALTA [Concomitant]
     Dosage: 60 MG, QD
     Dates: start: 2011
  4. PRADAXA [Concomitant]
     Dosage: 150 MG, BID
     Dates: start: 2012
  5. METOPROLOL [Concomitant]
     Dosage: 50 MG, BID
     Dates: start: 2012
  6. DILTIAZEM [Concomitant]
     Dosage: 30 MG, BID
     Dates: start: 2012
  7. ENALAPRIL [Concomitant]
     Dosage: 5 MG, QD
     Dates: start: 2012
  8. LASIX [Concomitant]
     Dosage: 200 MG, THREE TIMES A WEEK
     Dates: start: 2011
  9. ALDACTONE [Concomitant]
     Dosage: 25 MG, THREE TIMES A WEEK
     Dates: start: 2011
  10. PANTOPRAZOLE [Concomitant]
     Dosage: 40 G, QD
     Dates: start: 2013

REACTIONS (5)
  - Gallbladder pain [Recovered/Resolved]
  - Arthritis [Recovering/Resolving]
  - Atrial fibrillation [Not Recovered/Not Resolved]
  - Gastrointestinal fungal infection [Recovered/Resolved]
  - Herpes zoster [Recovered/Resolved]
